FAERS Safety Report 22303558 (Version 1)
Quarter: 2023Q2

REPORT INFORMATION
  Report Type: Spontaneous
  Country: DE (occurrence: DE)
  Receive Date: 20230510
  Receipt Date: 20230510
  Transmission Date: 20230722
  Serious: Yes (Hospitalization)
  Sender: FDA-Public Use
  Company Number: DE-JNJFOC-20230455209

PATIENT
  Age: 8 Decade
  Sex: Male

DRUGS (3)
  1. LENALIDOMIDE [Suspect]
     Active Substance: LENALIDOMIDE
     Indication: Plasma cell myeloma
     Dosage: 15 MG (LAST DOSE BEFORE SAE: 23 MAR 2023)
     Route: 048
     Dates: start: 20211230
  2. DEXAMETHASONE [Suspect]
     Active Substance: DEXAMETHASONE
     Indication: Plasma cell myeloma
     Dosage: 40 MG (LAST DOSE BEFORE SAE: MAR 2023)
     Route: 048
     Dates: start: 20211230
  3. DARZALEX [Suspect]
     Active Substance: DARATUMUMAB
     Indication: Plasma cell myeloma
     Dosage: 1800 MG (LAST DOSE BEFORE SAE 06 APR 2023)
     Route: 058
     Dates: start: 20220120

REACTIONS (1)
  - Pneumonia pneumococcal [Recovering/Resolving]

NARRATIVE: CASE EVENT DATE: 20230324
